FAERS Safety Report 24154413 (Version 3)
Quarter: 2024Q3

REPORT INFORMATION
  Report Type: Report from Study
  Country: CO (occurrence: CO)
  Receive Date: 20240731
  Receipt Date: 20240810
  Transmission Date: 20241016
  Serious: Yes (Death, Hospitalization)
  Sender: ABBVIE
  Company Number: CO-JNJFOC-20240772369

PATIENT
  Age: 77 Year
  Sex: Male
  Weight: 84 kg

DRUGS (1)
  1. IMBRUVICA [Suspect]
     Active Substance: IBRUTINIB
     Indication: Chronic lymphocytic leukaemia
     Route: 048
     Dates: start: 20211214

REACTIONS (11)
  - Death [Fatal]
  - Dyskinesia [Recovering/Resolving]
  - Aphasia [Recovering/Resolving]
  - Schizophrenia [Recovering/Resolving]
  - Eating disorder [Recovering/Resolving]
  - Electrolyte depletion [Unknown]
  - Muscle rigidity [Unknown]
  - Urinary tract infection [Unknown]
  - Pyrexia [Unknown]
  - Tremor [Unknown]
  - Condition aggravated [Unknown]

NARRATIVE: CASE EVENT DATE: 20240713
